FAERS Safety Report 5370088-2 (Version None)
Quarter: 2007Q2

REPORT INFORMATION
  Report Type: 
  Country: None (occurrence: None)
  Receive Date: 20070615
  Receipt Date: 20070108
  Transmission Date: 20071010
  Serious: Yes (Other)
  Sender: FDA-Public Use
  Company Number: US-JNJFOC-20060903612

PATIENT
  Age: 25 Year
  Sex: Male
  Weight: 63.5036 kg

DRUGS (1)
  1. PEPCID AC [Suspect]
     Indication: GASTROENTERITIS
     Dosage: 10 MG, 2 IN 1 DAY, ORAL
     Route: 048
     Dates: start: 20060912

REACTIONS (3)
  - DIZZINESS [None]
  - HYPOAESTHESIA [None]
  - SKIN DISCOLOURATION [None]
